FAERS Safety Report 5824470-7 (Version None)
Quarter: 2008Q3

REPORT INFORMATION
  Report Type: 
  Country: None (occurrence: None)
  Receive Date: 20080728
  Receipt Date: 20080717
  Transmission Date: 20090109
  Serious: Yes (Hospitalization)
  Sender: FDA-Public Use
  Company Number: B0530680A

PATIENT
  Age: 51 Year
  Sex: Male

DRUGS (11)
  1. VALTREX [Suspect]
     Dosage: 1G TWICE PER DAY
     Route: 048
     Dates: start: 20080619, end: 20080627
  2. ALLOPURINOL [Suspect]
     Dosage: 300MG PER DAY
     Route: 048
     Dates: start: 20080619, end: 20080627
  3. FLUDARABINE PHOSPHATE [Suspect]
     Dosage: 53MG PER DAY
     Route: 042
     Dates: start: 20080620, end: 20080622
  4. RITUXIMAB [Suspect]
     Route: 065
     Dates: start: 20080620, end: 20080620
  5. BACTRIM DS [Suspect]
     Route: 048
     Dates: start: 20080619, end: 20080627
  6. BETAFERON [Concomitant]
     Indication: MULTIPLE SCLEROSIS
     Dosage: 8IU3 THREE TIMES PER WEEK
     Route: 058
  7. LIORESAL [Concomitant]
     Indication: MULTIPLE SCLEROSIS
     Dosage: 25MG THREE TIMES PER DAY
     Route: 048
     Dates: start: 20080627
  8. DAFALGAN [Concomitant]
     Dosage: 1G FOUR TIMES PER DAY
     Route: 048
     Dates: start: 20080627
  9. CALCIMAGON [Concomitant]
     Dosage: 500MG TWICE PER DAY
     Route: 048
     Dates: start: 20080627
  10. LEUCOVORIN CALCIUM [Concomitant]
     Dates: start: 20080619
  11. ENOXAPARIN SODIUM [Concomitant]
     Dosage: 40MG PER DAY
     Dates: start: 20080619

REACTIONS (6)
  - EOSINOPHIL COUNT INCREASED [None]
  - GAMMA-GLUTAMYLTRANSFERASE INCREASED [None]
  - GENERAL PHYSICAL HEALTH DETERIORATION [None]
  - ILL-DEFINED DISORDER [None]
  - PYREXIA [None]
  - RASH MACULO-PAPULAR [None]
